FAERS Safety Report 8279878-X (Version None)
Quarter: 2012Q2

REPORT INFORMATION
  Report Type: 
  Country: None (occurrence: None)
  Receive Date: 20120412
  Receipt Date: 20120130
  Transmission Date: 20120825
  Serious: No
  Sender: FDA-Public Use
  Company Number: US-ASTRAZENECA-2012SE06428

PATIENT
  Age: 58 Year
  Sex: Male
  Weight: 72.6 kg

DRUGS (4)
  1. PRILOSEC OTC [Suspect]
     Route: 048
  2. CALCIUM CARBONATE [Concomitant]
  3. PARKINSONS MEDICATION [Concomitant]
  4. NEXIUM [Suspect]
     Indication: HYPERCHLORHYDRIA
     Route: 048

REACTIONS (5)
  - MOBILITY DECREASED [None]
  - DRUG DOSE OMISSION [None]
  - DRUG INEFFECTIVE [None]
  - MALAISE [None]
  - CONSTIPATION [None]
